FAERS Safety Report 13178209 (Version 2)
Quarter: 2017Q1

REPORT INFORMATION
  Report Type: Spontaneous
  Country: JP (occurrence: JP)
  Receive Date: 20170202
  Receipt Date: 20170203
  Transmission Date: 20170428
  Serious: Yes (Other)
  Sender: FDA-Public Use
  Company Number: JP-UCBSA-2017003896

PATIENT
  Age: 1 Year
  Sex: Female

DRUGS (1)
  1. XYZAL [Suspect]
     Active Substance: LEVOCETIRIZINE DIHYDROCHLORIDE
     Indication: URTICARIA
     Dosage: 2.5 MG, 2X/DAY (BID)
     Route: 048
     Dates: start: 20170124, end: 20170124

REACTIONS (2)
  - Unresponsive to stimuli [Recovered/Resolved]
  - Eye movement disorder [Recovered/Resolved]

NARRATIVE: CASE EVENT DATE: 20170124
